FAERS Safety Report 21859594 (Version 1)
Quarter: 2023Q1

REPORT INFORMATION
  Report Type: Spontaneous
  Country: JP (occurrence: JP)
  Receive Date: 20230113
  Receipt Date: 20230113
  Transmission Date: 20230417
  Serious: Yes (Hospitalization)
  Sender: FDA-Public Use
  Company Number: JP-ELI_LILLY_AND_COMPANY-JP202301001543AA

PATIENT
  Age: 74 Year
  Sex: Male
  Weight: 34.4 kg

DRUGS (2)
  1. INSULIN LISPRO [Suspect]
     Active Substance: INSULIN LISPRO
     Indication: Pancreatogenous diabetes
     Dosage: 1.2 U, OTHER
     Route: 058
  2. INSULIN LISPRO [Suspect]
     Active Substance: INSULIN LISPRO
     Dosage: 1.5-3.0UNIT/DAY(BOLUS), 1.575UNIT/DAY(BASAL)
     Route: 058

REACTIONS (3)
  - Anti-insulin antibody increased [Recovered/Resolved]
  - Hypoglycaemic coma [Recovered/Resolved]
  - Hypoglycaemia [Recovered/Resolved]
